FAERS Safety Report 21223137 (Version 2)
Quarter: 2022Q3

REPORT INFORMATION
  Report Type: Spontaneous
  Country: US (occurrence: US)
  Receive Date: 20220817
  Receipt Date: 20220911
  Transmission Date: 20221027
  Serious: No
  Sender: FDA-Public Use
  Company Number: US-SA-SAC20220815000612

PATIENT
  Sex: Male

DRUGS (17)
  1. DUPIXENT [Suspect]
     Active Substance: DUPILUMAB
     Indication: Asthma
     Dosage: 600 MG, TOTAL
     Route: 058
     Dates: start: 202207, end: 202207
  2. DUPIXENT [Suspect]
     Active Substance: DUPILUMAB
     Dosage: 300 MG, QOW
     Route: 058
     Dates: start: 202207
  3. ATORVASTATIN [Concomitant]
     Active Substance: ATORVASTATIN
  4. DULERA [Concomitant]
     Active Substance: FORMOTEROL FUMARATE DIHYDRATE\MOMETASONE FUROATE
  5. FIASP [Concomitant]
     Active Substance: INSULIN ASPART
  6. FOLIC ACID [Concomitant]
     Active Substance: FOLIC ACID
  7. GABAPENTIN [Concomitant]
     Active Substance: GABAPENTIN
  8. PROPRANOLOL [Concomitant]
     Active Substance: PROPRANOLOL HYDROCHLORIDE
  9. SINGULAIR [Concomitant]
     Active Substance: MONTELUKAST SODIUM
  10. SPIRIVA [Concomitant]
     Active Substance: TIOTROPIUM BROMIDE MONOHYDRATE
  11. TOUJEO MAX [Concomitant]
     Active Substance: INSULIN GLARGINE
  12. VENLAFAXINE [Concomitant]
     Active Substance: VENLAFAXINE HYDROCHLORIDE
  13. VENTOLIN HFA [Concomitant]
     Active Substance: ALBUTEROL SULFATE
  14. VITAMIN B12 [Concomitant]
     Active Substance: CYANOCOBALAMIN
  15. XYZAL [Concomitant]
     Active Substance: LEVOCETIRIZINE DIHYDROCHLORIDE
  16. VITAMIN D NOS [Concomitant]
     Active Substance: VITAMIN D NOS
  17. LEVOTHYROXINE [Concomitant]
     Active Substance: LEVOTHYROXINE

REACTIONS (7)
  - Tongue discolouration [Recovered/Resolved]
  - Tongue discomfort [Recovered/Resolved]
  - Glossodynia [Not Recovered/Not Resolved]
  - Ageusia [Not Recovered/Not Resolved]
  - Dyspnoea [Recovered/Resolved]
  - Insomnia [Not Recovered/Not Resolved]
  - Hypersensitivity [Recovered/Resolved]
